FAERS Safety Report 10597589 (Version 2)
Quarter: 2015Q1

REPORT INFORMATION
  Report Type: Spontaneous
  Country: DE (occurrence: DE)
  Receive Date: 20141121
  Receipt Date: 20150228
  Transmission Date: 20150720
  Serious: No
  Sender: FDA-Public Use
  Company Number: DE-BIOGENIDEC-2014BI121749

PATIENT
  Sex: Female

DRUGS (1)
  1. TYSABRI [Suspect]
     Active Substance: NATALIZUMAB
     Indication: MULTIPLE SCLEROSIS
     Route: 042
     Dates: start: 20090112

REACTIONS (1)
  - Multiple sclerosis relapse [Unknown]
